FAERS Safety Report 9794630 (Version 1)
Quarter: 2014Q1

REPORT INFORMATION
  Report Type: Spontaneous
  Country: US (occurrence: US)
  Receive Date: 20140102
  Receipt Date: 20140102
  Transmission Date: 20141002
  Serious: Yes (Death)
  Sender: FDA-Public Use
  Company Number: US-GLAXOSMITHKLINE-A1055046A

PATIENT
  Age: 63 Year
  Sex: Female

DRUGS (2)
  1. ADVAIR HFA [Suspect]
     Indication: RESPIRATORY DISORDER
     Route: 055
     Dates: start: 20090216
  2. VENTOLIN [Suspect]
     Indication: RESPIRATORY DISORDER
     Dosage: 90MCG UNKNOWN
     Route: 055
     Dates: start: 20090216

REACTIONS (1)
  - Death [Fatal]
